FAERS Safety Report 4865110-3 (Version None)
Quarter: 2005Q4

REPORT INFORMATION
  Report Type: 
  Country: None (occurrence: None)
  Receive Date: 20051223
  Receipt Date: 20051212
  Transmission Date: 20060501
  Serious: Yes (Hospitalization)
  Sender: FDA-Public Use
  Company Number: PHRM2005FR03262

PATIENT
  Age: 83 Year
  Sex: Female

DRUGS (6)
  1. COTAREG [Suspect]
     Dosage: 1 DF, QD
     Route: 048
  2. IXPRIM [Suspect]
     Indication: ROTATOR CUFF SYNDROME
     Dosage: 2 TABS/DAY
     Route: 048
     Dates: start: 20051014, end: 20051105
  3. CELIPROLOL [Concomitant]
     Dosage: 0.5 DF, BID
     Route: 048
  4. MOPRAL [Concomitant]
     Dosage: 10 MG, QD
     Route: 048
  5. DIAMICRON [Concomitant]
     Dosage: 60 MG/DAY
     Route: 048
  6. GLUCOPHAGE [Concomitant]
     Dosage: 1700 MG/DAY
     Route: 048

REACTIONS (9)
  - ACCIDENTAL OVERDOSE [None]
  - DEHYDRATION [None]
  - DIARRHOEA [None]
  - DISORIENTATION [None]
  - DISTURBANCE IN ATTENTION [None]
  - DRUG INTERACTION [None]
  - HYPONATRAEMIA [None]
  - NAUSEA [None]
  - VOMITING [None]
